APPROVED DRUG PRODUCT: LIRAGLUTIDE
Active Ingredient: LIRAGLUTIDE
Strength: 18MG/3ML (6MG/ML)
Dosage Form/Route: SOLUTION;SUBCUTANEOUS
Application: A217590 | Product #001 | TE Code: AP1
Applicant: ORBICULAR PHARMACEUTICAL TECHNOLOGIES PRIVATE LTD
Approved: Jan 14, 2026 | RLD: No | RS: No | Type: RX